FAERS Safety Report 15621820 (Version 1)
Quarter: 2018Q4

REPORT INFORMATION
  Report Type: Spontaneous
  Country: US (occurrence: US)
  Receive Date: 20181115
  Receipt Date: 20181115
  Transmission Date: 20190205
  Serious: No
  Sender: FDA-Public Use
  Company Number: US-PFIZER INC-2018458934

PATIENT
  Age: 15 Year
  Sex: Male

DRUGS (3)
  1. GENOTROPIN MQ [Suspect]
     Active Substance: SOMATROPIN
     Dosage: 1.4 MG, (5DAYS A WEEK)
  2. GENOTROPIN MQ [Suspect]
     Active Substance: SOMATROPIN
     Dosage: 1.6 MG, DAILY
  3. GENOTROPIN MQ [Suspect]
     Active Substance: SOMATROPIN
     Dosage: 1.2 MG, (5DAYS A WEEK)

REACTIONS (9)
  - Insulin-like growth factor increased [Not Recovered/Not Resolved]
  - Blood triglycerides increased [Unknown]
  - Intentional product misuse [Unknown]
  - Blood follicle stimulating hormone increased [Unknown]
  - High density lipoprotein decreased [Unknown]
  - Cortisol increased [Unknown]
  - Blood glucose increased [Unknown]
  - Blood thyroid stimulating hormone decreased [Unknown]
  - Bone density increased [Unknown]

NARRATIVE: CASE EVENT DATE: 20180606
